FAERS Safety Report 7983631-1 (Version None)
Quarter: 2011Q4

REPORT INFORMATION
  Report Type: 
  Country: None (occurrence: None)
  Receive Date: 20111215
  Receipt Date: 20111204
  Transmission Date: 20120403
  Serious: Yes (Other)
  Sender: FDA-Public Use
  Company Number: PHEH2011US01328

PATIENT
  Sex: Male

DRUGS (3)
  1. GLEEVEC [Suspect]
     Dosage: 300 MG, BID
     Route: 048
     Dates: start: 20110622
  2. GLEEVEC [Suspect]
     Indication: MALIGNANT SOFT TISSUE NEOPLASM
     Dosage: 200 MG, DAILY
     Route: 048
  3. ARANESP [Concomitant]

REACTIONS (7)
  - ANAEMIA [None]
  - DRUG INEFFECTIVE [None]
  - MALIGNANT SOFT TISSUE NEOPLASM [None]
  - DIZZINESS [None]
  - NEOPLASM MALIGNANT [None]
  - FATIGUE [None]
  - PAIN IN EXTREMITY [None]
